FAERS Safety Report 4731407-0 (Version None)
Quarter: 2005Q3

REPORT INFORMATION
  Report Type: 
  Country: None (occurrence: None)
  Receive Date: 20050719
  Receipt Date: 20040525
  Transmission Date: 20060218
  Serious: Yes (Hospitalization)
  Sender: FDA-Public Use
  Company Number: 198752

PATIENT
  Age: 33 Year
  Sex: Female
  Weight: 90.7194 kg

DRUGS (3)
  1. AVONEX [Suspect]
     Indication: MULTIPLE SCLEROSIS
     Dosage: 30 UG;QW;IM
     Route: 030
     Dates: start: 20040101
  2. SYNTHROID [Concomitant]
  3. LORCET-HD [Concomitant]

REACTIONS (4)
  - HEADACHE [None]
  - IRON DEFICIENCY ANAEMIA [None]
  - PAIN [None]
  - VOMITING [None]
